FAERS Safety Report 20280281 (Version 1)
Quarter: 2022Q1

REPORT INFORMATION
  Report Type: Spontaneous
  Country: BE (occurrence: BE)
  Receive Date: 20220103
  Receipt Date: 20220103
  Transmission Date: 20220423
  Serious: Yes (Hospitalization)
  Sender: FDA-Public Use
  Company Number: BE-NOVARTISPH-NVSC2021BE098664

PATIENT
  Age: 84 Year
  Sex: Male
  Weight: 95 kg

DRUGS (17)
  1. ASPIRIN [Suspect]
     Active Substance: ASPIRIN
     Indication: Cardiovascular event prophylaxis
     Dosage: 80 DF, QD
     Route: 065
     Dates: start: 20101116, end: 20210327
  2. ASPIRIN [Suspect]
     Active Substance: ASPIRIN
     Indication: Peripheral arterial occlusive disease
     Dosage: 80 DF, QD
     Route: 065
     Dates: start: 20210329
  3. ASPIRIN [Suspect]
     Active Substance: ASPIRIN
     Indication: Coronary artery disease
  4. XARELTO [Suspect]
     Active Substance: RIVAROXABAN
     Indication: Cardiovascular event prophylaxis
     Dosage: 5 MG, QD (2.5 MG, BID)
     Route: 065
     Dates: start: 20200625, end: 20200919
  5. XARELTO [Suspect]
     Active Substance: RIVAROXABAN
     Indication: Peripheral arterial occlusive disease
     Dosage: 5 MG, QD (2.5 MG, BID)
     Route: 065
     Dates: start: 20200922, end: 20210302
  6. XARELTO [Suspect]
     Active Substance: RIVAROXABAN
     Indication: Coronary artery disease
     Dosage: 5 MG, QD (2.5 MG, BID)
     Route: 065
     Dates: start: 20210304, end: 20210327
  7. XARELTO [Suspect]
     Active Substance: RIVAROXABAN
     Dosage: 5 MG, QD (2.5 MG, BID)
     Route: 065
     Dates: start: 20210330, end: 20210416
  8. XARELTO [Suspect]
     Active Substance: RIVAROXABAN
     Dosage: 5 MG, QD (2.5 MG, BID)
     Route: 065
     Dates: start: 20210422
  9. FENOFIBRATE [Concomitant]
     Active Substance: FENOFIBRATE
     Indication: Product used for unknown indication
     Dosage: 267 MG, QD
     Route: 065
     Dates: start: 20140822
  10. LERCANIDIPINE [Concomitant]
     Active Substance: LERCANIDIPINE
     Indication: Product used for unknown indication
     Dosage: 10 MG, QD (5 MG, BID)
     Route: 065
     Dates: start: 201806, end: 20201123
  11. ALLOPURINOL [Concomitant]
     Active Substance: ALLOPURINOL
     Indication: Product used for unknown indication
     Dosage: 300 MG, QD
     Route: 065
  12. CHOLECALCIFEROL [Concomitant]
     Active Substance: CHOLECALCIFEROL
     Indication: Product used for unknown indication
     Dosage: 25000 IU
     Route: 065
     Dates: start: 201605
  13. EZETIMIBE [Concomitant]
     Active Substance: EZETIMIBE
     Indication: Product used for unknown indication
     Dosage: 10 MG, QD
     Route: 065
     Dates: start: 20200625
  14. ATORVASTATIN [Concomitant]
     Active Substance: ATORVASTATIN
     Indication: Product used for unknown indication
     Dosage: 40 MG, QD
     Route: 065
     Dates: start: 20110907
  15. PANTOPRAZOLE [Concomitant]
     Active Substance: PANTOPRAZOLE
     Indication: Product used for unknown indication
     Dosage: 20 MG, QD
     Route: 065
     Dates: start: 20200911, end: 20201007
  16. CLOPIDOGREL [Concomitant]
     Active Substance: CLOPIDOGREL BISULFATE
     Indication: Product used for unknown indication
     Dosage: 75 MG
     Route: 065
     Dates: start: 20190401, end: 20200625
  17. OLMESARTAN [Concomitant]
     Active Substance: OLMESARTAN
     Indication: Product used for unknown indication
     Dosage: 40 MG, QD
     Route: 065
     Dates: start: 201711

REACTIONS (2)
  - Enterocolitis [Not Recovered/Not Resolved]
  - Cholelithiasis [Recovered/Resolved]

NARRATIVE: CASE EVENT DATE: 20210217
